FAERS Safety Report 8209191-8 (Version None)
Quarter: 2012Q1

REPORT INFORMATION
  Report Type: 
  Country: None (occurrence: None)
  Receive Date: 20120314
  Receipt Date: 20120307
  Transmission Date: 20120608
  Serious: Yes (Other)
  Sender: FDA-Public Use
  Company Number: US-BAYER-2011-050351

PATIENT
  Age: 39 Year
  Sex: Female
  Weight: 68 kg

DRUGS (9)
  1. YAZ [Suspect]
     Indication: OVARIAN CYST
  2. ASPIRIN [Concomitant]
     Route: 048
  3. ZOLOFT [Concomitant]
  4. NAPROXEN (ALEVE) [Concomitant]
     Dosage: UNK UNK, PRN
  5. YAZ [Suspect]
     Indication: MIGRAINE
  6. YAZ [Suspect]
     Indication: ACNE
     Dosage: UNK
     Dates: start: 20050101, end: 20100101
  7. YAZ [Suspect]
     Indication: PREMENSTRUAL SYNDROME
  8. ROBINUL [Concomitant]
     Dosage: UNK
     Dates: start: 20080910
  9. SERTRALINE HYDROCHLORIDE [Concomitant]

REACTIONS (8)
  - CHOLECYSTITIS CHRONIC [None]
  - PAIN [None]
  - BLOOD CHOLESTEROL INCREASED [None]
  - GALLBLADDER DISORDER [None]
  - INJURY [None]
  - RENAL INJURY [None]
  - NEPHROLITHIASIS [None]
  - KIDNEY INFECTION [None]
